FAERS Safety Report 25617298 (Version 2)
Quarter: 2025Q3

REPORT INFORMATION
  Report Type: Spontaneous
  Country: US (occurrence: US)
  Receive Date: 20250729
  Receipt Date: 20250729
  Transmission Date: 20251020
  Serious: Yes (Other)
  Sender: ROCHE
  Company Number: US-ROCHE-10000342421

PATIENT
  Sex: Female

DRUGS (5)
  1. SUSVIMO [Suspect]
     Active Substance: RANIBIZUMAB
     Indication: Product used for unknown indication
     Dosage: 100 MG/ML VIAL
     Route: 050
     Dates: start: 202501
  2. SUSVIMO [Suspect]
     Active Substance: RANIBIZUMAB
  3. SUSVIMO [Suspect]
     Active Substance: RANIBIZUMAB
  4. SUSVIMO [Suspect]
     Active Substance: RANIBIZUMAB
  5. SUSVIMO [Suspect]
     Active Substance: RANIBIZUMAB

REACTIONS (3)
  - Device issue [Unknown]
  - Conjunctival oedema [Unknown]
  - Ill-defined disorder [Unknown]

NARRATIVE: CASE EVENT DATE: 20250717
